FAERS Safety Report 6579302-9 (Version None)
Quarter: 2010Q1

REPORT INFORMATION
  Report Type: 
  Country: None (occurrence: None)
  Receive Date: 20100203
  Receipt Date: 20100125
  Transmission Date: 20100710
  Serious: Yes (Death)
  Sender: FDA-Public Use
  Company Number: PHO-2010-001

PATIENT
  Age: 73 Year
  Sex: Male

DRUGS (1)
  1. PHOTOFRIN [Suspect]
     Indication: SQUAMOUS CELL CARCINOMA
     Dosage: 2 MG/KG BODY WEIGHT
     Dates: start: 19910313

REACTIONS (1)
  - PNEUMONIA ASPIRATION [None]
